FAERS Safety Report 8422668-5 (Version None)
Quarter: 2012Q2

REPORT INFORMATION
  Report Type: 
  Country: None (occurrence: None)
  Receive Date: 20120529
  Receipt Date: 20120522
  Transmission Date: 20120825
  Serious: Yes (Death, Hospitalization)
  Sender: FDA-Public Use
  Company Number: 2012PROUSA01366

PATIENT
  Age: 59 Year
  Sex: Male
  Weight: 77.1 kg

DRUGS (23)
  1. PROVENGE [Suspect]
     Indication: PROSTATE CANCER METASTATIC
     Dosage: 250 ML, SINGLE, INTRAVENOUS
     Route: 042
     Dates: start: 20120419, end: 20120419
  2. DILTIAZEM [Concomitant]
  3. MULTIVITAMIN (ASCORBIC ACID, CALCIUM PANTOTHENATE, ERGOCALCIFEROL, NIC [Concomitant]
  4. CHOLECALCIFEROL [Concomitant]
  5. MS CONTIN [Concomitant]
  6. FLUOXETINE [Concomitant]
  7. FENTANYL [Concomitant]
  8. CASODEX [Concomitant]
  9. TRAMADOL HCL [Concomitant]
  10. KETOCONAZOLE [Concomitant]
  11. BUSPAR [Concomitant]
  12. B COMPLEX (BIOTIN, CALCIUM PANTOTHENATE, CHOLINE BITARTRATE, CYANOCOBA [Concomitant]
  13. PERCOCET [Concomitant]
  14. LORAZEPAM [Concomitant]
  15. NITROGLYCERIN [Concomitant]
  16. ESTER E (TOCOPHEROL) [Concomitant]
  17. ZOFRAN [Concomitant]
  18. CHLORDIAZEPOXIDE W/CLIDINIUM (CHLORDIAZEPOXIDE, CLINDINIUM) [Concomitant]
  19. ACETAMINOPHEN [Concomitant]
  20. ESGIC-PLUS (BUTALBITAL, CAFFEINE, PARACETAMOL) [Concomitant]
  21. CALCIUM MAGNESIUM ZINC (CALCIUM, MAGNESIUM, ZINC) [Concomitant]
  22. AMLODIPINE BESYLATE [Concomitant]
  23. MICRO-K (POTASSIUM CHLORIDE) [Concomitant]

REACTIONS (15)
  - NEOPLASM PROGRESSION [None]
  - PROSTATE CANCER [None]
  - DIZZINESS [None]
  - VOMITING [None]
  - BACK PAIN [None]
  - CHILLS [None]
  - PYREXIA [None]
  - NAUSEA [None]
  - SOMNOLENCE [None]
  - CHEST PAIN [None]
  - MUSCULOSKELETAL STIFFNESS [None]
  - ASTHENIA [None]
  - HEADACHE [None]
  - ARTHRALGIA [None]
  - HYPERHIDROSIS [None]
